FAERS Safety Report 9220531 (Version 3)
Quarter: 2014Q4

REPORT INFORMATION
  Report Type: Spontaneous
  Country: US (occurrence: US)
  Receive Date: 20130409
  Receipt Date: 20141014
  Transmission Date: 20150529
  Serious: Yes (Hospitalization)
  Sender: FDA-Public Use
  Company Number: US-BAYER-2013-043308

PATIENT
  Age: 36 Year
  Sex: Female

DRUGS (14)
  1. GIANVI [Suspect]
     Active Substance: DROSPIRENONE\ETHINYL ESTRADIOL
     Dosage: UNK
     Dates: start: 20090401, end: 20120310
  2. NEURONTIN [Concomitant]
     Active Substance: GABAPENTIN
  3. PERCOCET [Concomitant]
     Active Substance: ACETAMINOPHEN\OXYCODONE HYDROCHLORIDE
  4. CIPRO [Concomitant]
     Active Substance: CIPROFLOXACIN HYDROCHLORIDE
     Indication: URINARY TRACT INFECTION
  5. COLACE [Concomitant]
     Active Substance: DOCUSATE SODIUM
  6. DESYREL [Concomitant]
     Active Substance: TRAZODONE HYDROCHLORIDE
  7. OCELLA [Suspect]
     Active Substance: DROSPIRENONE\ETHINYL ESTRADIOL
     Dosage: UNK
     Dates: start: 20081219, end: 20120310
  8. VYVANSE [Concomitant]
     Active Substance: LISDEXAMFETAMINE DIMESYLATE
  9. FOLIC ACID. [Concomitant]
     Active Substance: FOLIC ACID
  10. LOPRESSOR [Concomitant]
     Active Substance: METOPROLOL TARTRATE
  11. YAZ [Suspect]
     Active Substance: DROSPIRENONE\ETHINYL ESTRADIOL
     Dosage: UNK
     Dates: start: 20081219, end: 20120310
  12. YASMIN [Suspect]
     Active Substance: DROSPIRENONE\ETHINYL ESTRADIOL
     Dosage: UNK
     Dates: start: 20081219, end: 20120310
  13. LISINOPRIL. [Concomitant]
     Active Substance: LISINOPRIL
  14. BUSPAR [Concomitant]
     Active Substance: BUSPIRONE HYDROCHLORIDE
     Indication: ANXIETY

REACTIONS (10)
  - Emotional distress [None]
  - Cerebrovascular accident [None]
  - Injury [None]
  - Renal embolism [None]
  - Pain [None]
  - Depression [None]
  - Fear of death [None]
  - Nervousness [None]
  - Peripheral embolism [None]
  - Aortic thrombosis [None]

NARRATIVE: CASE EVENT DATE: 201203
